FAERS Safety Report 7843165-1 (Version None)
Quarter: 2011Q4

REPORT INFORMATION
  Report Type: 
  Country: None (occurrence: None)
  Receive Date: 20111025
  Receipt Date: 20111024
  Transmission Date: 20120403
  Serious: Yes (Other)
  Sender: FDA-Public Use
  Company Number: US-PFIZER INC-2011132573

PATIENT
  Sex: Female

DRUGS (4)
  1. NIFEDIPINE [Concomitant]
     Indication: BLOOD PRESSURE
     Dosage: UNK
     Dates: start: 19910101
  2. LABETALOL [Concomitant]
     Indication: BLOOD PRESSURE
     Dosage: UNK
     Dates: start: 19910101
  3. TRIAMTERENE [Concomitant]
     Indication: BLOOD PRESSURE
     Dosage: UNK
     Dates: start: 20000101
  4. CHANTIX [Suspect]
     Indication: SMOKING CESSATION THERAPY
     Dosage: UNK
     Dates: start: 20061001, end: 20061101

REACTIONS (3)
  - ABNORMAL DREAMS [None]
  - SUICIDAL IDEATION [None]
  - DEPRESSION [None]
